FAERS Safety Report 20785384 (Version 1)
Quarter: 2022Q2

REPORT INFORMATION
  Report Type: Spontaneous
  Country: US (occurrence: None)
  Receive Date: 20220504
  Receipt Date: 20220504
  Transmission Date: 20220721
  Serious: No
  Sender: FDA-Public Use
  Company Number: 2022A149221

PATIENT
  Sex: Male
  Weight: 73.5 kg

DRUGS (4)
  1. SYMBICORT [Suspect]
     Active Substance: BUDESONIDE\FORMOTEROL FUMARATE DIHYDRATE
     Indication: Respiratory disorder
     Dosage: 160MCG/4.5MCG SYMBICORT 2 PUFFS ONCE DAILY
     Route: 055
  2. SYMBICORT [Suspect]
     Active Substance: BUDESONIDE\FORMOTEROL FUMARATE DIHYDRATE
     Indication: Dyspnoea
     Dosage: 160MCG/4.5MCG SYMBICORT 2 PUFFS ONCE DAILY
     Route: 055
  3. SYMBICORT [Suspect]
     Active Substance: BUDESONIDE\FORMOTEROL FUMARATE DIHYDRATE
     Indication: Wheezing
     Dosage: 160MCG/4.5MCG SYMBICORT 2 PUFFS ONCE DAILY
     Route: 055
  4. SYMBICORT [Suspect]
     Active Substance: BUDESONIDE\FORMOTEROL FUMARATE DIHYDRATE
     Indication: Cough
     Dosage: 160MCG/4.5MCG SYMBICORT 2 PUFFS ONCE DAILY
     Route: 055

REACTIONS (5)
  - Dyspnoea [Unknown]
  - Wheezing [Unknown]
  - Tremor [Unknown]
  - Inability to afford medication [Unknown]
  - Device use issue [Not Recovered/Not Resolved]
